FAERS Safety Report 7610003-1 (Version None)
Quarter: 2011Q3

REPORT INFORMATION
  Report Type: 
  Country: None (occurrence: None)
  Receive Date: 20110714
  Receipt Date: 20110705
  Transmission Date: 20111222
  Serious: Yes (Other)
  Sender: FDA-Public Use
  Company Number: US-ASTRAZENECA-2011SE40076

PATIENT
  Age: 58 Year
  Sex: Male
  Weight: 72.6 kg

DRUGS (10)
  1. SEROQUEL XR [Suspect]
     Indication: BIPOLAR DISORDER
     Route: 048
  2. BUPROPION HCL [Concomitant]
  3. PRIMIDONE [Concomitant]
  4. MULTI-VITAMIN [Concomitant]
  5. DEPAKOTE [Concomitant]
  6. LORTAB [Concomitant]
     Indication: RIB FRACTURE
  7. AXERT [Concomitant]
     Indication: MIGRAINE
  8. TRICOR [Concomitant]
  9. OMEPRAZOLE [Concomitant]
  10. ZOLOFT [Concomitant]

REACTIONS (5)
  - WEIGHT DECREASED [None]
  - DEPRESSION [None]
  - ANXIETY [None]
  - FALL [None]
  - RIB FRACTURE [None]
